FAERS Safety Report 10231142 (Version 3)
Quarter: 2014Q3

REPORT INFORMATION
  Report Type: Spontaneous
  Country: JP (occurrence: JP)
  Receive Date: 20140611
  Receipt Date: 20140715
  Transmission Date: 20150326
  Serious: Yes (Death, Life-Threatening, Hospitalization, Disabling)
  Sender: FDA-Public Use
  Company Number: JP-PFIZER INC-2014115530

PATIENT
  Age: 24 Day
  Sex: Male
  Weight: 2 kg

DRUGS (16)
  1. SOLU-CORTEF [Suspect]
     Active Substance: HYDROCORTISONE SODIUM SUCCINATE
     Indication: ELECTROLYTE SUBSTITUTION THERAPY
     Dosage: 13 MG, 1X/DAY
     Route: 042
     Dates: start: 20130514, end: 20130515
  2. DOBUTAMINE [Concomitant]
     Active Substance: DOBUTAMINE\DOBUTAMINE HYDROCHLORIDE
     Indication: VENTRICULAR EXTRASYSTOLES
     Dosage: 15 MG, 1X/DAY
     Route: 042
     Dates: start: 20130514, end: 20130609
  3. CEFAZOLIN SODIUM. [Concomitant]
     Active Substance: CEFAZOLIN SODIUM
     Indication: ANTIBIOTIC THERAPY
     Dosage: 65 MG, 1X/DAY
     Dates: start: 20130517, end: 20130628
  4. MEYLON [Concomitant]
     Active Substance: SODIUM BICARBONATE
     Indication: ACIDOSIS
     Dosage: 30 ML, 1X/DAY
     Dates: start: 20130514, end: 20130611
  5. MUSCURATE [Concomitant]
     Active Substance: VECURONIUM BROMIDE
     Indication: HYPOTONIA
     Dosage: 0.3 MG, 1X/DAY
     Route: 042
     Dates: start: 20130514, end: 20130606
  6. HUMULIN R [Concomitant]
     Active Substance: INSULIN HUMAN
     Indication: HYPERGLYCAEMIA
     Dosage: 3 DF, 1X/DAY
     Route: 042
     Dates: start: 20130516, end: 20130524
  7. FENTANYL. [Concomitant]
     Active Substance: FENTANYL
     Indication: ANALGESIC THERAPY
  8. PITRESSIN [Suspect]
     Active Substance: VASOPRESSIN
     Indication: BLOOD PRESSURE INCREASED
     Dosage: 1 MG, 1X/DAY
     Route: 042
     Dates: start: 20130522, end: 20130523
  9. INOVAN [Concomitant]
     Active Substance: DOPAMINE HYDROCHLORIDE
     Indication: ELECTROLYTE SUBSTITUTION THERAPY
     Dosage: 15 MG, 1X/DAY
     Route: 042
     Dates: start: 20130514, end: 20130609
  10. MIDAZOLAM [Concomitant]
     Active Substance: MIDAZOLAM\MIDAZOLAM HYDROCHLORIDE
     Indication: SEDATION
     Dosage: 40 MG, 1X/DAY
     Route: 042
     Dates: start: 20130516, end: 20130523
  11. FENTANYL. [Concomitant]
     Active Substance: FENTANYL
     Indication: SEDATION
     Dosage: 2 UG, 1X/DAY
     Route: 042
     Dates: start: 20130606, end: 20130628
  12. FOSPHENYTOIN SODIUM. [Concomitant]
     Active Substance: FOSPHENYTOIN SODIUM
     Indication: STATUS EPILEPTICUS
     Dosage: 18 MG, 1X/DAY
     Route: 042
     Dates: start: 20130519, end: 20130605
  13. AMIZET XB [Concomitant]
     Indication: SUPPLEMENTATION THERAPY
     Dosage: 90 ML, 1X/DAY
     Dates: start: 20130515, end: 20130628
  14. PITRESSIN [Suspect]
     Active Substance: VASOPRESSIN
     Indication: HYPOTENSION
  15. SODIUM PHOSPHATE [Concomitant]
     Active Substance: SODIUM PHOSPHATE
     Indication: FLUID REPLACEMENT
     Dosage: 0.4 ML, 1X/DAY
     Route: 042
     Dates: start: 20130527, end: 20130530
  16. NOBELBAR [Concomitant]
     Indication: CONVULSION NEONATAL
     Dosage: 6.5 MG, 2X/DAY
     Route: 042
     Dates: start: 20130514, end: 20130628

REACTIONS (3)
  - Necrotising colitis [Fatal]
  - Renal failure acute [Fatal]
  - Gastrointestinal perforation [Fatal]

NARRATIVE: CASE EVENT DATE: 20130607
